FAERS Safety Report 19367185 (Version 1)
Quarter: 2021Q2

REPORT INFORMATION
  Report Type: Spontaneous
  Country: DE (occurrence: DE)
  Receive Date: 20210603
  Receipt Date: 20210603
  Transmission Date: 20210717
  Serious: Yes (Hospitalization, Other)
  Sender: FDA-Public Use
  Company Number: DE-MYLANLABS-2021M1030975

PATIENT

DRUGS (4)
  1. CAPECITABINE. [Suspect]
     Active Substance: CAPECITABINE
     Indication: NEUROENDOCRINE TUMOUR
     Dosage: UNK
  2. CAPECITABINE. [Suspect]
     Active Substance: CAPECITABINE
     Indication: METASTASES TO LIVER
     Dosage: 540 MILLIGRAM/SQ. METER
     Route: 048
     Dates: start: 201906, end: 201908
  3. TEMOZOLOMIDE. [Suspect]
     Active Substance: TEMOZOLOMIDE
     Indication: NEUROENDOCRINE TUMOUR
     Dosage: UNK
  4. TEMOZOLOMIDE. [Suspect]
     Active Substance: TEMOZOLOMIDE
     Indication: METASTASES TO LIVER
     Dosage: 150 MILLIGRAM/SQ. METER
     Route: 048
     Dates: start: 201906, end: 201908

REACTIONS (4)
  - Febrile neutropenia [Recovered/Resolved]
  - Mastitis [Recovered/Resolved]
  - Pneumonia fungal [Recovered/Resolved]
  - Pancytopenia [Recovered/Resolved]

NARRATIVE: CASE EVENT DATE: 201907
